FAERS Safety Report 18284439 (Version 1)
Quarter: 2020Q3

REPORT INFORMATION
  Report Type: Spontaneous
  Country: CN (occurrence: CN)
  Receive Date: 20200918
  Receipt Date: 20200918
  Transmission Date: 20201103
  Serious: Yes (Other)
  Sender: FDA-Public Use
  Company Number: CN-ABBVIE-20K-035-3562613-00

PATIENT
  Age: 7 Year
  Sex: Female

DRUGS (1)
  1. IBRUTINIB [Suspect]
     Active Substance: IBRUTINIB
     Indication: AUTOIMMUNE HAEMOLYTIC ANAEMIA
     Route: 048
     Dates: start: 20191202

REACTIONS (6)
  - Off label use [Unknown]
  - Neutropenia [Unknown]
  - Leukopenia [Unknown]
  - Hypokalaemia [Unknown]
  - Hyperuricaemia [Unknown]
  - Nausea [Unknown]
